FAERS Safety Report 9220427 (Version 1)
Quarter: 2013Q2

REPORT INFORMATION
  Report Type: Report from Study
  Country: DE (occurrence: DE)
  Receive Date: 20130409
  Receipt Date: 20130409
  Transmission Date: 20140414
  Serious: Yes (Death)
  Sender: FDA-Public Use
  Company Number: DE-BAXTER-2013BAX013042

PATIENT
  Sex: 0

DRUGS (5)
  1. ENDOXAN 1G [Suspect]
     Indication: ACUTE LEUKAEMIA
     Dosage: DAY -7 TO -6
     Route: 042
  2. CLOFARABINE [Suspect]
     Indication: ACUTE LEUKAEMIA
     Dosage: DAY -15 TO -11
     Route: 042
  3. FLUDARABINE [Suspect]
     Indication: ACUTE LEUKAEMIA
     Dosage: DAY -7 TO -3
  4. TACROLIMUS [Suspect]
     Indication: ACUTE LEUKAEMIA
     Dosage: DAYS 5-180
  5. MYCOPHENOLATE MOFETIL [Suspect]
     Indication: ACUTE LEUKAEMIA
     Dosage: DAYS 5-35

REACTIONS (1)
  - Sudden death [Fatal]
